FAERS Safety Report 11656516 (Version 1)
Quarter: 2015Q4

REPORT INFORMATION
  Report Type: Spontaneous
  Country: BR (occurrence: BR)
  Receive Date: 20151023
  Receipt Date: 20151023
  Transmission Date: 20160304
  Serious: Yes (Other)
  Sender: FDA-Public Use
  Company Number: BR-ASTRAZENECA-2015SF01780

PATIENT
  Age: 58 Year
  Sex: Female

DRUGS (11)
  1. METFORMIN [Suspect]
     Active Substance: METFORMIN HYDROCHLORIDE
     Dosage: 850 MG, THREE TIMES A DAY, NON AZ PRODUCT
     Route: 065
  2. GLIBENCLAMIDE [Concomitant]
     Active Substance: GLYBURIDE
  3. VALSARTAN. [Concomitant]
     Active Substance: VALSARTAN
  4. AMARYL [Concomitant]
     Active Substance: GLIMEPIRIDE
  5. ASA [Concomitant]
     Active Substance: ASPIRIN
  6. EUTHYROX [Concomitant]
     Active Substance: LEVOTHYROXINE SODIUM
  7. AMARYL [Concomitant]
     Active Substance: GLIMEPIRIDE
  8. NPH INSULIN [Concomitant]
     Active Substance: INSULIN BEEF
     Dosage: 50UI + 36 UI + 16 UI
     Dates: start: 20140327
  9. FORXIGA [Suspect]
     Active Substance: DAPAGLIFLOZIN
     Route: 048
  10. GALVUSMET [Concomitant]
     Dosage: 50/850, TWO TIMES A DAY
  11. SIMVASTATIN. [Concomitant]
     Active Substance: SIMVASTATIN

REACTIONS (1)
  - Blood glucose increased [Unknown]
